FAERS Safety Report 11871773 (Version 2)
Quarter: 2016Q1

REPORT INFORMATION
  Report Type: Spontaneous
  Country: JP (occurrence: JP)
  Receive Date: 20151228
  Receipt Date: 20160201
  Transmission Date: 20160526
  Serious: Yes (Hospitalization)
  Sender: FDA-Public Use
  Company Number: JP-SA-2015SA218819

PATIENT
  Age: 57 Year
  Sex: Female

DRUGS (3)
  1. ELPLAT [Suspect]
     Active Substance: OXALIPLATIN
     Indication: COLON CANCER
     Dosage: INTRAVENOUS INFUSION
     Route: 041
  2. XELODA [Concomitant]
     Active Substance: CAPECITABINE
  3. AVASTIN [Concomitant]
     Active Substance: BEVACIZUMAB

REACTIONS (3)
  - Stomal varices [Recovered/Resolved]
  - Anorectal varices haemorrhage [Recovered/Resolved]
  - Portal hypertension [Recovering/Resolving]
